FAERS Safety Report 10390684 (Version 1)
Quarter: 2014Q3

REPORT INFORMATION
  Report Type: Spontaneous
  Country: IT (occurrence: None)
  Receive Date: 20140814
  Receipt Date: 20140814
  Transmission Date: 20150326
  Serious: Yes (Life-Threatening)
  Sender: FDA-Public Use
  Company Number: FK201403237

PATIENT
  Age: 71 Year
  Sex: Female

DRUGS (2)
  1. PACLITAXEL (PACLITAXEL) (PACLITAXEL) [Suspect]
     Active Substance: PACLITAXEL
     Indication: BREAST CANCER METASTATIC
     Dosage: 90MG, CYCLICAL INTRAVENOUS NOT OTHERWISE SPECIFIED
     Route: 042
     Dates: start: 20140531, end: 20140630
  2. BEVACIZUMAB [Concomitant]
     Active Substance: BEVACIZUMAB

REACTIONS (1)
  - Anaphylactic shock [None]

NARRATIVE: CASE EVENT DATE: 20140630
